FAERS Safety Report 8866190 (Version 1)
Quarter: 2012Q4

REPORT INFORMATION
  Report Type: Report from Study
  Country: BR (occurrence: BR)
  Receive Date: 20121025
  Receipt Date: 20121025
  Transmission Date: 20130627
  Serious: Yes (Other)
  Sender: FDA-Public Use
  Company Number: BR-ROCHE-1148806

PATIENT
  Age: 62 Year
  Sex: Male
  Weight: 82 kg

DRUGS (9)
  1. BEVACIZUMAB [Suspect]
     Indication: COLORECTAL CANCER
     Route: 042
     Dates: start: 20110104, end: 20110531
  2. CAPECITABINE [Suspect]
     Indication: COLORECTAL CANCER
     Route: 065
     Dates: start: 20110104, end: 20110531
  3. OXALIPLATIN [Suspect]
     Indication: COLORECTAL CANCER
     Route: 065
     Dates: start: 20110104, end: 20110531
  4. ERBITUX [Concomitant]
     Route: 065
  5. FLUOROURACIL [Concomitant]
     Route: 065
  6. FLUOROURACIL [Concomitant]
     Route: 065
  7. IRINOTECAN HYDROCHLORIDE [Concomitant]
     Route: 065
  8. LEUCOVORIN [Concomitant]
     Route: 065
  9. PANITUMUMAB [Concomitant]
     Route: 065

REACTIONS (1)
  - Disease progression [Unknown]
